FAERS Safety Report 14508769 (Version 1)
Quarter: 2018Q1

REPORT INFORMATION
  Report Type: Spontaneous
  Country: US (occurrence: US)
  Receive Date: 20180209
  Receipt Date: 20180209
  Transmission Date: 20180509
  Serious: Yes (Other)
  Sender: FDA-Public Use
  Company Number: US-ACCORD-060464

PATIENT
  Age: 73 Year
  Sex: Female
  Weight: 57.15 kg

DRUGS (3)
  1. CALCIUM/ERGOCALCIFEROL [Concomitant]
     Dosage: OTC
  2. XGEVA [Concomitant]
     Active Substance: DENOSUMAB
     Dosage: SHOT ONCE A MONTH
     Dates: start: 2013
  3. CAPECITABINE. [Suspect]
     Active Substance: CAPECITABINE
     Indication: BREAST CANCER METASTATIC
     Dosage: STRENGTH: 500 MG ??1000 MG TWICE DAILY, ONE WEEK ON FOLLOWED BY ONE WEEK REST PERIOD
     Route: 048
     Dates: start: 201610, end: 20170822

REACTIONS (2)
  - Burning sensation [Recovered/Resolved]
  - Pericardial effusion [Unknown]

NARRATIVE: CASE EVENT DATE: 201708
